FAERS Safety Report 7983609-8 (Version None)
Quarter: 2011Q4

REPORT INFORMATION
  Report Type: 
  Country: None (occurrence: None)
  Receive Date: 20111215
  Receipt Date: 20111213
  Transmission Date: 20120403
  Serious: Yes (Life-Threatening)
  Sender: FDA-Public Use
  Company Number: PHHY2011FR108803

PATIENT
  Sex: Male

DRUGS (2)
  1. DIURETICS [Concomitant]
  2. GLEEVEC [Suspect]
     Indication: CHRONIC LYMPHOCYTIC LEUKAEMIA
     Dosage: UNK
     Dates: end: 20111118

REACTIONS (8)
  - HAEMORRHAGE INTRACRANIAL [None]
  - HYPERTHERMIA [None]
  - HEADACHE [None]
  - AGITATION [None]
  - ABNORMAL BEHAVIOUR [None]
  - MIOSIS [None]
  - VOMITING [None]
  - APHASIA [None]
